FAERS Safety Report 12369810 (Version 1)
Quarter: 2016Q2

REPORT INFORMATION
  Report Type: Spontaneous
  Country: US (occurrence: None)
  Receive Date: 20160513
  Receipt Date: 20160513
  Transmission Date: 20160815
  Serious: No
  Sender: FDA-Public Use
  Company Number: None

PATIENT
  Age: 65 Year
  Sex: Female
  Weight: 89.36 kg

DRUGS (13)
  1. VIT B [Concomitant]
     Active Substance: VITAMIN B
  2. VICTOZA [Concomitant]
     Active Substance: LIRAGLUTIDE
  3. ATORVASTATIN [Concomitant]
     Active Substance: ATORVASTATIN
  4. MULTI VITAMIN [Concomitant]
     Active Substance: VITAMINS
  5. VENLAFAXINE ER [Suspect]
     Active Substance: VENLAFAXINE HYDROCHLORIDE
     Indication: THERAPY CHANGE
     Dosage: 90 CAPSULE (S) IN THE MORNING TAKEN BY MOUTH
     Route: 048
     Dates: start: 20160501, end: 20160503
  6. EFFEXOR XR [Concomitant]
     Active Substance: VENLAFAXINE HYDROCHLORIDE
  7. LOUVAZA [Concomitant]
  8. D [Concomitant]
  9. CARVEDILOL. [Concomitant]
     Active Substance: CARVEDILOL
  10. NEURONTIN [Concomitant]
     Active Substance: GABAPENTIN
  11. CALCIUM [Concomitant]
     Active Substance: CALCIUM
  12. METFORMIN [Concomitant]
     Active Substance: METFORMIN HYDROCHLORIDE
  13. CLARATIN [Concomitant]

REACTIONS (5)
  - Product substitution issue [None]
  - Drug withdrawal syndrome [None]
  - Impaired driving ability [None]
  - Abasia [None]
  - Thinking abnormal [None]

NARRATIVE: CASE EVENT DATE: 20160510
